FAERS Safety Report 5635021-4 (Version None)
Quarter: 2008Q1

REPORT INFORMATION
  Report Type: 
  Country: None (occurrence: None)
  Receive Date: 20080131
  Receipt Date: 20071119
  Transmission Date: 20080703
  Serious: No
  Sender: FDA-Public Use
  Company Number: 163-21880-07101190

PATIENT
  Age: 72 Year
  Sex: Female

DRUGS (2)
  1. REVLIMID [Suspect]
     Indication: MULTIPLE MYELOMA
     Dosage: 25 MG, DAILY FOR 3 WEEKS ON AND 1 WEEK OFF, ORAL ; 20 MG, 2 IN 1 D, ORAL
     Route: 048
     Dates: start: 20070205, end: 20070801
  2. REVLIMID [Suspect]
     Indication: MULTIPLE MYELOMA
     Dosage: 25 MG, DAILY FOR 3 WEEKS ON AND 1 WEEK OFF, ORAL ; 20 MG, 2 IN 1 D, ORAL
     Route: 048
     Dates: start: 20070921

REACTIONS (2)
  - DIZZINESS [None]
  - DRUG INEFFECTIVE [None]
